APPROVED DRUG PRODUCT: CEFADROXIL
Active Ingredient: CEFADROXIL/CEFADROXIL HEMIHYDRATE
Strength: EQ 500MG BASE/5ML
Dosage Form/Route: FOR SUSPENSION;ORAL
Application: A065307 | Product #003
Applicant: CHARTWELL RX SCIENCES LLC
Approved: Oct 16, 2006 | RLD: No | RS: No | Type: DISCN